FAERS Safety Report 5875734-2 (Version None)
Quarter: 2008Q3

REPORT INFORMATION
  Report Type: 
  Country: None (occurrence: None)
  Receive Date: 20080905
  Receipt Date: 20080822
  Transmission Date: 20090109
  Serious: Yes (Hospitalization)
  Sender: FDA-Public Use
  Company Number: 2008S1011516

PATIENT
  Age: 53 Year
  Sex: Female
  Weight: 90.7194 kg

DRUGS (7)
  1. AMLODIPINE BESYLATE [Suspect]
     Indication: HYPERTENSION
     Dosage: 5 MG;DAILY;ORAL
     Route: 048
     Dates: start: 20080623, end: 20080624
  2. AMLODIPINE BESYLATE [Suspect]
     Indication: TRANSIENT ISCHAEMIC ATTACK
     Dosage: 5 MG;DAILY;ORAL
     Route: 048
     Dates: start: 20080623, end: 20080624
  3. TIZANIDINE HCL [Concomitant]
  4. NEURONTIN [Concomitant]
  5. DIAZEPAM [Concomitant]
  6. NITROSTAT [Concomitant]
  7. ASPIRIN [Concomitant]

REACTIONS (10)
  - AMNESIA [None]
  - FALL [None]
  - HYPOTENSION [None]
  - INCOHERENT [None]
  - PRURITUS [None]
  - PSYCHOTIC DISORDER [None]
  - RESPIRATORY ARREST [None]
  - SPEECH DISORDER [None]
  - SWELLING FACE [None]
  - URTICARIA [None]
